FAERS Safety Report 18282646 (Version 1)
Quarter: 2020Q3

REPORT INFORMATION
  Report Type: Spontaneous
  Country: US (occurrence: US)
  Receive Date: 20200917
  Receipt Date: 20200917
  Transmission Date: 20201103
  Serious: No
  Sender: FDA-Public Use
  Company Number: None

PATIENT
  Age: 50 Year
  Sex: Female

DRUGS (4)
  1. TEMOZOLOMIDE 140 MG CAP [Suspect]
     Active Substance: TEMOZOLOMIDE
     Indication: NEUROENDOCRINE CARCINOMA
     Dosage: ?          OTHER FREQUENCY:140MG W/ 1 180 CAP;OTHER ROUTE:OTHER?
  2. CAPECITABINE 150MG [Suspect]
     Active Substance: CAPECITABINE
     Indication: NEUROENDOCRINE CARCINOMA
     Route: 048
     Dates: start: 20191217
  3. CAPECITABINE 500MG TAB [Suspect]
     Active Substance: CAPECITABINE
     Route: 048
  4. TEMOZOLOMIDE 180 MG CAP [Suspect]
     Active Substance: TEMOZOLOMIDE

REACTIONS (2)
  - Therapy interrupted [None]
  - Surgery [None]

NARRATIVE: CASE EVENT DATE: 20200904
